FAERS Safety Report 8335822-8 (Version None)
Quarter: 2012Q2

REPORT INFORMATION
  Report Type: 
  Country: None (occurrence: None)
  Receive Date: 20120504
  Receipt Date: 20120426
  Transmission Date: 20120825
  Serious: Yes (Other)
  Sender: FDA-Public Use
  Company Number: US-SHIRE-ALL1-2012-02165

PATIENT
  Sex: Male
  Weight: 80.726 kg

DRUGS (3)
  1. ADDERALL XR 10 [Suspect]
     Indication: OBSESSIVE-COMPULSIVE DISORDER
     Dosage: 10 MG, 1X/DAY:QD
     Route: 048
     Dates: start: 20070101, end: 20070101
  2. ADDERALL XR 10 [Suspect]
     Indication: MENTAL DISORDER
     Dosage: 30 MG, 1X/DAY:QD
     Route: 048
     Dates: start: 20070101, end: 20070101
  3. ADDERALL XR 10 [Suspect]
     Dosage: 60 MG, 1X/DAY:QD (TWO 30 MG CAPSULES)
     Route: 048
     Dates: start: 20070101

REACTIONS (7)
  - INSOMNIA [None]
  - EJACULATION DISORDER [None]
  - PROSTATOMEGALY [None]
  - DEPRESSION [None]
  - DRUG INEFFECTIVE FOR UNAPPROVED INDICATION [None]
  - PAIN IN EXTREMITY [None]
  - OVERDOSE [None]
